FAERS Safety Report 4673795-X (Version None)
Quarter: 2005Q2

REPORT INFORMATION
  Report Type: 
  Country: None (occurrence: None)
  Receive Date: 20050524
  Receipt Date: 20050512
  Transmission Date: 20051028
  Serious: Yes (Hospitalization)
  Sender: FDA-Public Use
  Company Number: 11119

PATIENT
  Age: 79 Year
  Sex: Female

DRUGS (3)
  1. CARBOPLATIN [Suspect]
     Dosage: 450  MG, IV
     Route: 042
     Dates: start: 20050419, end: 20050419
  2. GRANISETRON [Concomitant]
  3. SOLDESAM [Concomitant]

REACTIONS (2)
  - ARTERIAL DISORDER [None]
  - DYSPNOEA [None]
